FAERS Safety Report 6834553-0 (Version None)
Quarter: 2010Q3

REPORT INFORMATION
  Report Type: 
  Country: None (occurrence: None)
  Receive Date: 20100712
  Receipt Date: 20070424
  Transmission Date: 20110219
  Serious: Yes (Other)
  Sender: FDA-Public Use
  Company Number: US-PFIZER INC-2007034298

PATIENT
  Sex: Female
  Weight: 72.727 kg

DRUGS (8)
  1. CHANTIX [Suspect]
     Indication: SMOKING CESSATION THERAPY
     Dates: start: 20070421, end: 20070421
  2. XOPENEX [Concomitant]
     Indication: ASTHMA
  3. PREDNISONE [Concomitant]
     Indication: ASTHMA
  4. LORTAB [Concomitant]
  5. OXYGEN [Concomitant]
  6. HYOSCYAMINE [Concomitant]
  7. ALL OTHER THERAPEUTIC PRODUCTS [Concomitant]
     Indication: ASTHMA
  8. ALL OTHER THERAPEUTIC PRODUCTS [Concomitant]
     Indication: ANXIETY

REACTIONS (2)
  - DYSPNOEA [None]
  - HEART RATE INCREASED [None]
